FAERS Safety Report 14619808 (Version 2)
Quarter: 2018Q1

REPORT INFORMATION
  Report Type: Spontaneous
  Country: BR (occurrence: BR)
  Receive Date: 20180309
  Receipt Date: 20180321
  Transmission Date: 20180509
  Serious: Yes (Other)
  Sender: FDA-Public Use
  Company Number: PHHY2018BR036059

PATIENT
  Sex: Female
  Weight: 72 kg

DRUGS (10)
  1. OMEPRAZOLE. [Concomitant]
     Active Substance: OMEPRAZOLE
     Indication: ABDOMINAL PAIN UPPER
     Dosage: 1 DF, QD
     Route: 048
  2. VELIX [Concomitant]
     Indication: PAIN
     Dosage: 1 DF, QD
     Route: 048
  3. TEGRETOL [Suspect]
     Active Substance: CARBAMAZEPINE
     Indication: SPINAL CORD DISORDER
     Dosage: 1 DF, Q12H (DURING FIVE DAYS)
     Route: 048
  4. TEGRETOL [Suspect]
     Active Substance: CARBAMAZEPINE
     Dosage: 2 DF, Q8H
     Route: 048
  5. CAL D [Concomitant]
     Indication: HYPOVITAMINOSIS
     Dosage: 1 DF, QD
     Route: 048
  6. CALCIUM [Concomitant]
     Active Substance: CALCIUM
     Indication: CALCIUM DEFICIENCY
     Dosage: 1 DF, QD
     Route: 048
  7. CENTRUM [Concomitant]
     Active Substance: VITAMINS
     Indication: HYPOVITAMINOSIS
     Dosage: 1 DF, QD
     Route: 048
  8. TEGRETOL [Suspect]
     Active Substance: CARBAMAZEPINE
     Indication: BACK PAIN
     Dosage: 7 DF, Q8H
     Route: 048
  9. NEOSINE [Concomitant]
     Active Substance: INOSINE PRANOBEX
     Indication: SLEEP DISORDER
     Dosage: 6 DRP, QD
     Route: 048
  10. VITAMIN B6 [Concomitant]
     Active Substance: PYRIDOXINE HYDROCHLORIDE
     Indication: PRODUCT USED FOR UNKNOWN INDICATION
     Dosage: UNK
     Route: 065

REACTIONS (12)
  - Intervertebral disc protrusion [Not Recovered/Not Resolved]
  - Spinal pain [Recovering/Resolving]
  - Hypothyroidism [Not Recovered/Not Resolved]
  - Dizziness [Unknown]
  - Eye irritation [Not Recovered/Not Resolved]
  - Product use in unapproved indication [Unknown]
  - Euphoric mood [Recovered/Resolved]
  - Rhinitis [Not Recovered/Not Resolved]
  - Osteoporosis [Not Recovered/Not Resolved]
  - Thinking abnormal [Unknown]
  - Back pain [Not Recovered/Not Resolved]
  - Sciatica [Recovering/Resolving]
